FAERS Safety Report 18501917 (Version 1)
Quarter: 2020Q4

REPORT INFORMATION
  Report Type: Spontaneous
  Country: US (occurrence: US)
  Receive Date: 20201113
  Receipt Date: 20201113
  Transmission Date: 20210114
  Serious: No
  Sender: FDA-Public Use
  Company Number: US-SA-2020SA314407

PATIENT

DRUGS (2)
  1. INSULIN LISPRO [Suspect]
     Active Substance: INSULIN LISPRO
     Indication: GESTATIONAL DIABETES
     Dosage: 14 UNITS BREAKFAST AND 12 UNITS DINNER, BID
     Route: 065
  2. LANTUS [Suspect]
     Active Substance: INSULIN GLARGINE
     Indication: GESTATIONAL DIABETES
     Dosage: 28 UNITS AM AND 14 UNITS HS , BID
     Route: 065

REACTIONS (2)
  - Off label use [Unknown]
  - Exposure during pregnancy [Unknown]
